FAERS Safety Report 5106083-8 (Version None)
Quarter: 2006Q3

REPORT INFORMATION
  Report Type: 
  Country: None (occurrence: None)
  Receive Date: 20060912
  Receipt Date: 20060830
  Transmission Date: 20061208
  Serious: Yes (Hospitalization, Other)
  Sender: FDA-Public Use
  Company Number: 2006107726

PATIENT
  Age: 69 Year
  Sex: Male
  Weight: 90.7194 kg

DRUGS (5)
  1. BEXTRA [Suspect]
     Indication: ARTHRITIS
     Dosage: 20 MG (20 MG, 1 IN 1 D),
     Dates: start: 20020405, end: 20040628
  2. NAPROXEN [Concomitant]
  3. ASPIRIN [Concomitant]
  4. CELEBREX [Concomitant]
  5. ACETAMINOPHEN [Concomitant]

REACTIONS (3)
  - CAROTID ENDARTERECTOMY [None]
  - CEREBROVASCULAR ACCIDENT [None]
  - CORONARY ARTERY DISEASE [None]
